FAERS Safety Report 8823379 (Version 1)
Quarter: 2012Q4

REPORT INFORMATION
  Report Type: 
  Country: FR (occurrence: FR)
  Receive Date: 20121003
  Receipt Date: 20121003
  Transmission Date: 20130627
  Serious: Yes (Hospitalization)
  Sender: FDA-Public Use
  Company Number: FR-GILEAD-2012-0062241

PATIENT
  Age: 21 Year
  Sex: Male

DRUGS (8)
  1. TRUVADA [Suspect]
     Indication: HIV INFECTION
     Route: 048
  2. ROCEPHINE [Suspect]
     Dosage: UNK
     Route: 042
     Dates: start: 20120828, end: 20120906
  3. BACTRIM [Suspect]
     Indication: HIV INFECTION
     Dosage: UNK
     Dates: start: 20120613, end: 20120831
  4. PREZISTA [Suspect]
     Indication: HIV INFECTION
     Route: 048
  5. NORVIR [Suspect]
     Indication: HIV INFECTION
     Route: 048
  6. PYOSTACINE [Concomitant]
  7. PERFALGAN [Concomitant]
  8. TOPALGIC                           /00599202/ [Concomitant]

REACTIONS (1)
  - Neutropenia [Not Recovered/Not Resolved]
